FAERS Safety Report 25131037 (Version 3)
Quarter: 2025Q3

REPORT INFORMATION
  Report Type: Spontaneous
  Country: CA (occurrence: CA)
  Receive Date: 20250327
  Receipt Date: 20250821
  Transmission Date: 20251021
  Serious: Yes (Life-Threatening, Disabling, Other)
  Sender: PFIZER
  Company Number: CA-PFIZER INC-202500065135

PATIENT
  Age: 33 Year
  Sex: Female

DRUGS (11)
  1. PAXLOVID [Interacting]
     Active Substance: NIRMATRELVIR\RITONAVIR
     Indication: COVID-19 treatment
  2. ESCITALOPRAM [Interacting]
     Active Substance: ESCITALOPRAM OXALATE
     Dosage: 3 MG, 1X/DAY
  3. AMITRIPTYLINE HYDROCHLORIDE [Interacting]
     Active Substance: AMITRIPTYLINE HYDROCHLORIDE
     Indication: Migraine
     Dosage: 25 MG, 1X/DAY
  4. VYVANSE [Interacting]
     Active Substance: LISDEXAMFETAMINE DIMESYLATE
     Indication: Attention deficit hyperactivity disorder
     Dosage: 60 MG, 1X/DAY
     Route: 048
  5. BILASTINE [Concomitant]
     Active Substance: BILASTINE
     Route: 048
  6. ALLEGRA [Concomitant]
     Active Substance: FEXOFENADINE HYDROCHLORIDE
  7. LIVER SUPPORT [Concomitant]
  8. ORGANIKA MAGNESIUM BISGLYCINATE [Concomitant]
  9. PEPCID TAB 20MG [Concomitant]
  10. HERBALS\TURMERIC [Concomitant]
     Active Substance: HERBALS\TURMERIC
  11. VITAMIN D3 [Concomitant]
     Active Substance: CHOLECALCIFEROL

REACTIONS (50)
  - Abdominal pain [Recovered/Resolved]
  - Alopecia [Recovered/Resolved]
  - Anorectal disorder [Recovered/Resolved]
  - Anxiety [Recovered/Resolved]
  - Arthralgia [Recovered/Resolved]
  - Attention deficit hyperactivity disorder [Recovered/Resolved]
  - Brain fog [Recovered/Resolved]
  - Breast pain [Recovered/Resolved]
  - Burning sensation [Recovered/Resolved]
  - Chills [Recovered/Resolved]
  - Cognitive disorder [Recovered/Resolved]
  - Drug ineffective [Recovered/Resolved]
  - Drug interaction [Recovered/Resolved]
  - Dyspepsia [Recovered/Resolved]
  - Dysphagia [Recovered/Resolved]
  - Dyspnoea [Recovered/Resolved]
  - Gastrointestinal pain [Recovered/Resolved]
  - Haemorrhage [Recovered/Resolved]
  - Headache [Recovered/Resolved]
  - Hepatic pain [Recovered/Resolved]
  - Hyperhidrosis [Recovered/Resolved]
  - Joint swelling [Recovered/Resolved]
  - Pain [Recovered/Resolved]
  - Paraesthesia [Recovered/Resolved]
  - Peripheral swelling [Recovered/Resolved]
  - Photosensitivity reaction [Recovered/Resolved]
  - Product availability issue [Recovered/Resolved]
  - Product formulation issue [Recovered/Resolved]
  - Product physical issue [Recovered/Resolved]
  - Product shape issue [Recovered/Resolved]
  - Product size issue [Recovered/Resolved]
  - Product substitution issue [Recovered/Resolved]
  - Suspected product tampering [Recovered/Resolved]
  - Product taste abnormal [Recovered/Resolved]
  - Rash [Recovered/Resolved]
  - Rash erythematous [Recovered/Resolved]
  - Swelling [Recovered/Resolved]
  - Temperature regulation disorder [Recovered/Resolved]
  - Therapy interrupted [Recovered/Resolved]
  - Tremor [Recovered/Resolved]
  - Urinary tract pain [Recovered/Resolved]
  - Vaginal disorder [Recovered/Resolved]
  - Withdrawal syndrome [Recovered/Resolved]
  - Condition aggravated [Recovered/Resolved]
  - Product colour issue [Recovered/Resolved]
  - Product dosage form issue [Recovered/Resolved]
  - Product physical consistency issue [Not Recovered/Not Resolved]
  - Acute stress disorder [Recovered/Resolved]
  - Cytokine storm [Recovered/Resolved]
  - Mast cell activation syndrome [Recovered/Resolved]
